FAERS Safety Report 8822939 (Version 1)
Quarter: 2012Q4

REPORT INFORMATION
  Report Type: 
  Country: CA (occurrence: CA)
  Receive Date: 20121003
  Receipt Date: 20121003
  Transmission Date: 20130627
  Serious: Yes (Hospitalization, Other)
  Sender: FDA-Public Use
  Company Number: PHHY2012CA083957

PATIENT
  Age: 45 Year
  Sex: Female

DRUGS (3)
  1. CLOZARIL [Suspect]
     Dosage: 400 mg, UNK
     Dates: start: 1989
  2. CLOZARIL [Suspect]
     Dosage: 300 mg, UNK
  3. CLOZARIL [Suspect]
     Dosage: 700 mg, UNK

REACTIONS (10)
  - Feeling abnormal [Unknown]
  - Morose [Unknown]
  - Personality change [Unknown]
  - Antisocial behaviour [Unknown]
  - Blunted affect [Unknown]
  - Delusion [Unknown]
  - Tardive dyskinesia [Unknown]
  - Incontinence [Unknown]
  - Drug intolerance [Unknown]
  - Incorrect dose administered [Unknown]
